FAERS Safety Report 7794856 (Version 3)
Quarter: 2013Q2

REPORT INFORMATION
  Report Type: Report from Study
  Country: MX (occurrence: MX)
  Receive Date: 20110201
  Receipt Date: 20130527
  Transmission Date: 20140414
  Serious: Yes (Other)
  Sender: FDA-Public Use
  Company Number: PHHY2011MX05126

PATIENT
  Age: 77 Year
  Sex: Female

DRUGS (6)
  1. EXELON PATCH [Suspect]
     Indication: DEMENTIA ALZHEIMER^S TYPE
     Dosage: 4.6 MG DAILY
     Route: 062
     Dates: start: 20100915
  2. EXELON PATCH [Suspect]
     Dosage: 9.5 MG, UNK
     Route: 062
     Dates: start: 20101015
  3. EXELON PATCH [Suspect]
     Dosage: 4.6 MG, UNK
     Route: 062
     Dates: start: 20101115, end: 20101201
  4. AKATINOL [Concomitant]
  5. LERCANIDIPINE [Concomitant]
  6. ENALAPRIL [Concomitant]

REACTIONS (6)
  - Cyanosis [Recovered/Resolved]
  - Urticaria [Recovered/Resolved]
  - Rash pruritic [Recovered/Resolved]
  - Contusion [Recovered/Resolved]
  - Skin exfoliation [Recovered/Resolved]
  - Application site pain [Recovered/Resolved]
